FAERS Safety Report 7726870-7 (Version None)
Quarter: 2011Q3

REPORT INFORMATION
  Report Type: 
  Country: None (occurrence: None)
  Receive Date: 20110902
  Receipt Date: 20110822
  Transmission Date: 20111222
  Serious: Yes (Hospitalization, Other)
  Sender: FDA-Public Use
  Company Number: CA-GENENTECH-276727

PATIENT
  Sex: Female
  Weight: 36 kg

DRUGS (14)
  1. XOLAIR [Suspect]
     Dosage: 375 MG, Q2W
     Route: 058
     Dates: start: 20091214
  2. XOLAIR [Suspect]
     Dosage: 375 MG, Q2W
     Route: 058
     Dates: start: 20091228
  3. SYNTHROID [Concomitant]
     Indication: PRODUCT USED FOR UNKNOWN INDICATION
  4. ANTIBIOTICS (NOT SPECIFIED) [Concomitant]
     Indication: PRODUCT USED FOR UNKNOWN INDICATION
  5. XOLAIR [Suspect]
     Dosage: 375 MG, Q2W
     Route: 058
     Dates: start: 20100222
  6. SINGULAIR [Concomitant]
     Indication: PRODUCT USED FOR UNKNOWN INDICATION
  7. NASONEX [Concomitant]
     Indication: PRODUCT USED FOR UNKNOWN INDICATION
  8. XOLAIR [Suspect]
     Indication: ASTHMA
     Dosage: 375 MG, Q2W
     Route: 058
     Dates: start: 20081118
  9. XOLAIR [Suspect]
     Dosage: 375 MG, Q2W
     Dates: start: 20091130
  10. XOLAIR [Suspect]
     Dosage: 375 MG, Q2W
     Route: 058
     Dates: start: 20100308
  11. ALVESCO [Concomitant]
     Indication: PRODUCT USED FOR UNKNOWN INDICATION
  12. SYMBICORT [Concomitant]
     Indication: PRODUCT USED FOR UNKNOWN INDICATION
  13. BUDESONIDE [Concomitant]
     Indication: PRODUCT USED FOR UNKNOWN INDICATION
  14. FORMOTEROL FUMARATE [Concomitant]
     Indication: PRODUCT USED FOR UNKNOWN INDICATION

REACTIONS (24)
  - ECCHYMOSIS [None]
  - NAUSEA [None]
  - DYSPHONIA [None]
  - BURNING SENSATION [None]
  - BRONCHITIS [None]
  - HYPOAESTHESIA [None]
  - HAEMATOMA [None]
  - PAIN [None]
  - MYALGIA [None]
  - HEADACHE [None]
  - PULMONARY FUNCTION TEST ABNORMAL [None]
  - OEDEMA PERIPHERAL [None]
  - FATIGUE [None]
  - PHOTOPHOBIA [None]
  - BONE PAIN [None]
  - ARTHRALGIA [None]
  - ASTHMA [None]
  - PARAESTHESIA [None]
  - BACK PAIN [None]
  - MUSCLE SPASMS [None]
  - PULMONARY CONGESTION [None]
  - BLOOD PRESSURE DECREASED [None]
  - MIGRAINE [None]
  - PRODUCTIVE COUGH [None]
